FAERS Safety Report 5775082-5 (Version None)
Quarter: 2008Q2

REPORT INFORMATION
  Report Type: 
  Country: None (occurrence: None)
  Receive Date: 20080616
  Receipt Date: 20080616
  Transmission Date: 20081010
  Serious: Yes (Other)
  Sender: FDA-Public Use
  Company Number: None

PATIENT
  Age: 21 Year
  Sex: Female
  Weight: 52.1637 kg

DRUGS (3)
  1. YAZ [Suspect]
     Dosage: 1 TABLET 1 TIME PER DAY PO
     Route: 048
     Dates: start: 20080309, end: 20080318
  2. MINOCYCLINE HCL [Suspect]
     Indication: ACNE
     Dosage: 1 CAPSULE 2 TIMES DAILY PO  -OFF/ON 5-YRS-
     Route: 048
     Dates: start: 20070818, end: 20080410
  3. TOPICAL MEDICATIONS FOR ACNE [Concomitant]

REACTIONS (2)
  - HEADACHE [None]
  - VISUAL DISTURBANCE [None]
